FAERS Safety Report 4492935-9 (Version None)
Quarter: 2004Q4

REPORT INFORMATION
  Report Type: 
  Country: None (occurrence: None)
  Receive Date: 20041104
  Receipt Date: 20041027
  Transmission Date: 20050328
  Serious: Yes (Life-Threatening, Hospitalization)
  Sender: FDA-Public Use
  Company Number: US-MERCK-0410USA04098

PATIENT
  Age: 69 Year
  Sex: Male

DRUGS (2)
  1. PRINZIDE [Suspect]
     Indication: HYPERTENSION
     Route: 048
     Dates: start: 20030101, end: 20040301
  2. PLAVIX [Suspect]
     Route: 065

REACTIONS (2)
  - ADVERSE DRUG REACTION [None]
  - RED BLOOD CELL COUNT DECREASED [None]
